FAERS Safety Report 26027340 (Version 1)
Quarter: 2025Q4

REPORT INFORMATION
  Report Type: Spontaneous
  Country: US (occurrence: US)
  Receive Date: 20251111
  Receipt Date: 20251111
  Transmission Date: 20260117
  Serious: Yes (Other)
  Sender: BAYER HEALTHCARE PHARMACEUTICALS INC.
  Company Number: US-BAYER-2025A147882

PATIENT
  Age: 87 Year
  Sex: Male

DRUGS (2)
  1. XOFIGO [Suspect]
     Active Substance: RADIUM RA-223 DICHLORIDE
     Dosage: UNK
     Dates: start: 20250604, end: 20250604
  2. XOFIGO [Suspect]
     Active Substance: RADIUM RA-223 DICHLORIDE
     Dosage: UNK
     Dates: start: 20251008, end: 20251008

REACTIONS (1)
  - Asthenia [None]

NARRATIVE: CASE EVENT DATE: 20251105
